FAERS Safety Report 5402726-X (Version None)
Quarter: 2007Q3

REPORT INFORMATION
  Report Type: 
  Country: None (occurrence: None)
  Receive Date: 20070801
  Receipt Date: 20070724
  Transmission Date: 20080115
  Serious: Yes (Hospitalization, Disabling, Other)
  Sender: FDA-Public Use
  Company Number: US-PURDUE-USA_2007_0028070

PATIENT
  Age: 48 Year
  Sex: Male

DRUGS (3)
  1. OXYCONTIN [Suspect]
     Indication: PAIN
     Dosage: 40 MG, SEE TEXT
     Route: 048
  2. METHADONE HCL [Concomitant]
     Indication: PAIN
     Dosage: UNK, UNK
  3. DURAGESIC-100 [Concomitant]
     Indication: PAIN
     Dosage: UNK, UNK
     Route: 061

REACTIONS (8)
  - AMNESIA [None]
  - CONVULSION [None]
  - HALLUCINATION [None]
  - INFECTION [None]
  - MALAISE [None]
  - RENAL FAILURE [None]
  - TOOTH LOSS [None]
  - VERBAL ABUSE [None]
